FAERS Safety Report 7492470-X (Version None)
Quarter: 2011Q2

REPORT INFORMATION
  Report Type: 
  Country: None (occurrence: None)
  Receive Date: 20110519
  Receipt Date: 20110510
  Transmission Date: 20111010
  Serious: Yes (Hospitalization)
  Sender: FDA-Public Use
  Company Number: US-MYLANLABS-2011S1009699

PATIENT
  Age: 72 Year
  Sex: Male

DRUGS (4)
  1. FENTANYL-100 [Suspect]
     Indication: PAIN
     Dosage: Q3D
     Route: 062
  2. FLEXERIL [Concomitant]
     Route: 048
  3. PERCOCET [Concomitant]
     Route: 048
  4. NORVASC [Concomitant]
     Route: 048

REACTIONS (3)
  - URINARY TRACT INFECTION [None]
  - WITHDRAWAL SYNDROME [None]
  - HALLUCINATION [None]
